FAERS Safety Report 16204311 (Version 1)
Quarter: 2019Q2

REPORT INFORMATION
  Report Type: Report from Study
  Country: HN (occurrence: HN)
  Receive Date: 20190416
  Receipt Date: 20190416
  Transmission Date: 20190711
  Serious: Yes (Other)
  Sender: FDA-Public Use
  Company Number: HN-SA-2019SA101393

PATIENT
  Age: 40 Year
  Sex: Male

DRUGS (2)
  1. INSULIN GLARGINE [Suspect]
     Active Substance: INSULIN GLARGINE
     Indication: DIABETES MELLITUS
     Dosage: 15 IU, QD
     Route: 058
     Dates: start: 201902
  2. INSULIN GLARGINE [Suspect]
     Active Substance: INSULIN GLARGINE
     Dosage: 20 IU, QD
     Route: 058

REACTIONS (3)
  - Syncope [Unknown]
  - Dizziness [Unknown]
  - Hyperglycaemia [Unknown]
